FAERS Safety Report 13384711 (Version 1)
Quarter: 2017Q1

REPORT INFORMATION
  Report Type: Spontaneous
  Country: SG (occurrence: SG)
  Receive Date: 20170329
  Receipt Date: 20170329
  Transmission Date: 20170429
  Serious: Yes (Other)
  Sender: FDA-Public Use
  Company Number: SG-SA-2017SA043505

PATIENT
  Age: 67 Year
  Sex: Male

DRUGS (1)
  1. TELFAST D [Suspect]
     Active Substance: FEXOFENADINE HYDROCHLORIDE\PSEUDOEPHEDRINE HYDROCHLORIDE
     Route: 065

REACTIONS (1)
  - Orbital oedema [Unknown]

NARRATIVE: CASE EVENT DATE: 20170101
